FAERS Safety Report 14745635 (Version 6)
Quarter: 2018Q2

REPORT INFORMATION
  Report Type: Spontaneous
  Country: US (occurrence: US)
  Receive Date: 20180411
  Receipt Date: 20180615
  Transmission Date: 20180711
  Serious: No
  Sender: FDA-Public Use
  Company Number: US-PFIZER INC-2018144644

PATIENT
  Age: 50 Year
  Sex: Male
  Weight: 86 kg

DRUGS (2)
  1. SUTENT [Suspect]
     Active Substance: SUNITINIB MALATE
     Indication: RENAL CANCER STAGE IV
     Dosage: 50 MG, CYCLIC (DAILY FOR 28 DAYS ON/14 DAYS OFF)
     Dates: start: 20180319, end: 2018
  2. SUTENT [Suspect]
     Active Substance: SUNITINIB MALATE
     Indication: METASTASES TO LYMPH NODES

REACTIONS (7)
  - Dysgeusia [Recovered/Resolved]
  - Lymphadenopathy [Recovered/Resolved]
  - Impaired healing [Unknown]
  - Scratch [Unknown]
  - Blood creatinine increased [Unknown]
  - Pain in extremity [Not Recovered/Not Resolved]
  - Blood pressure increased [Unknown]

NARRATIVE: CASE EVENT DATE: 2018
